FAERS Safety Report 7691380-2 (Version None)
Quarter: 2011Q3

REPORT INFORMATION
  Report Type: 
  Country: None (occurrence: None)
  Receive Date: 20110818
  Receipt Date: 20110808
  Transmission Date: 20111222
  Serious: Yes (Hospitalization, Other)
  Sender: FDA-Public Use
  Company Number: PHHY2011US33720

PATIENT
  Sex: Male

DRUGS (22)
  1. LOTREL [Concomitant]
     Indication: HYPERTENSION
     Dosage: 20 MG,DAILY
     Route: 048
  2. ADVAIR DISKUS 100/50 [Concomitant]
     Dosage: UNK
  3. AMITIZA [Concomitant]
     Dosage: 24 UG, BID
     Route: 048
  4. ASPIRIN [Concomitant]
     Dosage: 81 MG, DAILY
     Route: 048
  5. DIAZEPAM [Concomitant]
     Dosage: 2 MG, UEVERY 6-8 HOURS
     Route: 048
  6. SENNA [Concomitant]
     Dosage: 25 MG, AT BEDTIME
     Route: 048
  7. VESICARE [Concomitant]
     Dosage: UNK
  8. LANTUS [Concomitant]
     Indication: TYPE 2 DIABETES MELLITUS
     Dosage: 30 U, QD
     Route: 058
  9. GLYBURIDE [Concomitant]
     Indication: TYPE 2 DIABETES MELLITUS
     Dosage: 5 MG, BID
  10. DULCOLAX [Concomitant]
     Dosage: 10 MG, DAILY
     Route: 054
  11. DOCUSATE SODIUM [Concomitant]
     Dosage: 300 MG, DAILY
     Route: 048
  12. MIRALAX [Concomitant]
     Dosage: 17 G, DAILY
     Route: 048
  13. FLOMAX [Concomitant]
     Dosage: 0.4 MG, DAILY
     Route: 048
  14. GILENYA [Suspect]
     Indication: MULTIPLE SCLEROSIS
     Dosage: 0.5 MG, QD
     Route: 048
     Dates: start: 20110403
  15. TIZANIDINE HCL [Concomitant]
     Dosage: 6 MG, QID
     Route: 048
  16. AMBIEN [Concomitant]
     Dosage: 10 MG, AT BED TIME
     Route: 048
  17. PRILOSEC [Concomitant]
     Dosage: 40 MG, DAILY
     Route: 048
  18. LYRICA [Concomitant]
     Dosage: 200 MG, BID
     Route: 048
  19. BACLOFEN [Concomitant]
     Dosage: 30 MG, QID
     Route: 048
  20. CYMBALTA [Concomitant]
     Dosage: 60 MG, DAILY
     Route: 048
  21. NEURONTIN [Concomitant]
     Dosage: 100 MG, TID
     Route: 048
  22. FISH OIL [Concomitant]
     Dosage: 1000 MG, DAILY
     Route: 048

REACTIONS (25)
  - NEUROGENIC BLADDER [None]
  - URINARY INCONTINENCE [None]
  - ABDOMINAL PAIN [None]
  - CONSTIPATION [None]
  - BLOOD GLUCOSE INCREASED [None]
  - DYSPNOEA [None]
  - CHEST DISCOMFORT [None]
  - TOOTH ABSCESS [None]
  - ASTHMA [None]
  - FALL [None]
  - MEDICATION ERROR [None]
  - PRODUCTIVE COUGH [None]
  - CHILLS [None]
  - MUSCLE SPASMS [None]
  - DEPRESSION [None]
  - DEPRESSED MOOD [None]
  - LACRIMATION INCREASED [None]
  - GASTROOESOPHAGEAL REFLUX DISEASE [None]
  - PNEUMONIA [None]
  - URINE COLOUR ABNORMAL [None]
  - EYE IRRITATION [None]
  - BLOOD PRESSURE INCREASED [None]
  - DIARRHOEA [None]
  - NEPHROLITHIASIS [None]
  - MULTIPLE SCLEROSIS RELAPSE [None]
